FAERS Safety Report 23864048 (Version 1)
Quarter: 2024Q2

REPORT INFORMATION
  Report Type: Spontaneous
  Country: BR (occurrence: BR)
  Receive Date: 20240516
  Receipt Date: 20240516
  Transmission Date: 20240715
  Serious: Yes (Other)
  Sender: FDA-Public Use
  Company Number: BR-PHATHOM PHARMACEUTICALS INC.-2024PHT00306

PATIENT
  Sex: Male

DRUGS (2)
  1. VONOPRAZAN FUMARATE [Suspect]
     Active Substance: VONOPRAZAN FUMARATE
     Indication: Hiatus hernia
     Dosage: UNK
     Route: 065
  2. VONOPRAZAN FUMARATE [Suspect]
     Active Substance: VONOPRAZAN FUMARATE
     Indication: Reflux gastritis

REACTIONS (4)
  - Hiatus hernia [Unknown]
  - Gastrooesophageal reflux disease [Unknown]
  - Incorrect product administration duration [Unknown]
  - Off label use [Unknown]
